FAERS Safety Report 7225027-6 (Version None)
Quarter: 2011Q1

REPORT INFORMATION
  Report Type: 
  Country: None (occurrence: None)
  Receive Date: 20110113
  Receipt Date: 20101222
  Transmission Date: 20110831
  Serious: No
  Sender: FDA-Public Use
  Company Number: US-B.I. PHARMACEUTICALS,INC./RIDGEFIELD-2010-BP-15335BP

PATIENT
  Sex: Female

DRUGS (9)
  1. DIGOXIN [Concomitant]
     Indication: ATRIAL FIBRILLATION
  2. DILTIAZEM [Concomitant]
     Indication: HYPERTENSION
  3. FUROSEMIDE [Concomitant]
     Indication: FLUID RETENTION
  4. PROLIA [Concomitant]
     Indication: OSTEOPOROSIS
  5. KLOR-CON [Concomitant]
     Indication: PROPHYLAXIS
  6. CALCIUM + D [Concomitant]
     Indication: PROPHYLAXIS
  7. MULTIVITAMIN [Concomitant]
     Indication: PROPHYLAXIS
  8. PRADAXA [Suspect]
     Indication: ATRIAL FIBRILLATION
     Dosage: 300 MG
     Route: 048
     Dates: start: 20101218
  9. UROQID [Concomitant]
     Indication: URINARY TRACT INFECTION

REACTIONS (1)
  - CHROMATURIA [None]
